FAERS Safety Report 20461732 (Version 8)
Quarter: 2022Q4

REPORT INFORMATION
  Report Type: Report from Study
  Country: GT (occurrence: None)
  Receive Date: 20220211
  Receipt Date: 20221229
  Transmission Date: 20230113
  Serious: Yes (Death)
  Sender: FDA-Public Use
  Company Number: GT-ROCHE-3022632

PATIENT
  Age: 56 Year
  Sex: Female
  Weight: 49 kg

DRUGS (11)
  1. ATEZOLIZUMAB [Suspect]
     Active Substance: ATEZOLIZUMAB
     Indication: Non-small cell lung cancer metastatic
     Dosage: START DATE OF MOST RECENT DOSE OF STUDY DRUG PRIOR TO AE: 24/JAN/2022 2:50 PM (1875 MG).
     Route: 058
     Dates: start: 20220103, end: 20220208
  2. LOSARTAN [Concomitant]
     Active Substance: LOSARTAN
     Indication: Hypertension
     Route: 048
     Dates: start: 201505
  3. PREDNISONE [Concomitant]
     Active Substance: PREDNISONE
     Indication: Rash
     Route: 048
     Dates: start: 20220127, end: 20220202
  4. PREDNISONE [Concomitant]
     Active Substance: PREDNISONE
     Indication: Pruritus
     Dates: start: 20220203, end: 20220207
  5. DEXAMETHASONE;MOXIFLOXACIN [Concomitant]
     Indication: Rash
     Route: 047
     Dates: start: 20220127, end: 20220207
  6. DEXAMETHASONE;MOXIFLOXACIN [Concomitant]
     Indication: Pruritus
  7. TRAZIDEX [Concomitant]
     Indication: Rash
     Route: 047
     Dates: start: 20220127, end: 20220207
  8. TRAZIDEX [Concomitant]
     Indication: Pruritus
  9. CRISTAL TEARS PLUS [Concomitant]
     Indication: Dry eye
     Route: 047
     Dates: start: 20220127, end: 20220207
  10. L-ISOLEUCINE [Concomitant]
     Indication: Rash
     Route: 061
     Dates: start: 20220127, end: 20220207
  11. L-ISOLEUCINE [Concomitant]
     Indication: Pruritus

REACTIONS (1)
  - Toxic epidermal necrolysis [Fatal]

NARRATIVE: CASE EVENT DATE: 20220208
